FAERS Safety Report 4479778-7 (Version None)
Quarter: 2004Q4

REPORT INFORMATION
  Report Type: 
  Country: None (occurrence: None)
  Receive Date: 20041020
  Receipt Date: 20040307
  Transmission Date: 20050328
  Serious: Yes (Other)
  Sender: FDA-Public Use
  Company Number: PHEH2004US02765

PATIENT
  Age: 65 Year
  Sex: Male
  Weight: 119 kg

DRUGS (9)
  1. GLEEVEC [Suspect]
     Indication: CHRONIC MYELOID LEUKAEMIA
     Dosage: 400 MG, QD
     Route: 048
     Dates: start: 20020806, end: 20040301
  2. SPECTAZOLE [Concomitant]
     Indication: STAPHYLOCOCCAL INFECTION
     Dates: start: 20010108
  3. ACETAMINOPHEN W/HYDROCODONE [Concomitant]
     Indication: PAIN
     Dosage: 5/500MG, Q6H
     Dates: start: 20000923, end: 20030916
  4. VERAPAMIL [Concomitant]
     Indication: HYPERTENSION
     Dosage: 240 MG, DAILY
     Dates: start: 20020925, end: 20040109
  5. TRIAMTERENE AND HYDROCHLOROTHIAZIDE [Concomitant]
     Indication: HYPERTENSION
     Dosage: 75/50 0.5 TABLET DAILY
     Dates: start: 20000629
  6. ACETAMINOPHEN AND OXYCODONE HCL [Concomitant]
     Indication: PAIN
     Dosage: 5/325 2 TABLETS EVERY 6 HOURS
     Dates: start: 20030808, end: 20030901
  7. MORPHINE SULFATE [Concomitant]
     Indication: PAIN
     Dosage: 30 MG, TID2SDO
     Dates: start: 20020306
  8. PAXIL [Concomitant]
     Indication: DEPRESSION
     Dosage: 40 MG, DAILY
     Dates: start: 20010530
  9. ATENOLOL [Concomitant]
     Indication: HYPERTENSION
     Dosage: 25 MG, DAILY
     Dates: start: 20000820

REACTIONS (6)
  - BONE PAIN [None]
  - FEMUR FRACTURE [None]
  - IMPAIRED HEALING [None]
  - INTERNAL FIXATION OF FRACTURE [None]
  - OSTEOPENIA [None]
  - PATHOLOGICAL FRACTURE [None]
